FAERS Safety Report 24675214 (Version 1)
Quarter: 2024Q4

REPORT INFORMATION
  Report Type: Spontaneous
  Country: US (occurrence: US)
  Receive Date: 20241128
  Receipt Date: 20241128
  Transmission Date: 20250115
  Serious: Yes (Other)
  Sender: HIKMA
  Company Number: US-HIKMA PHARMACEUTICALS USA INC.-US-H14001-24-11003

PATIENT
  Sex: Male

DRUGS (1)
  1. INFUMORPH [Suspect]
     Active Substance: MORPHINE SULFATE
     Indication: Spinal pain
     Dosage: HAD 10MG INFUMORPH, INCREASED/CURRENT SETTINGS WERE 1.199MG AND .050MG/HR.
     Route: 037

REACTIONS (8)
  - Headache [Unknown]
  - Lung neoplasm malignant [Unknown]
  - Incision site complication [Recovering/Resolving]
  - Erythema [Recovering/Resolving]
  - Skin irritation [Recovering/Resolving]
  - Diarrhoea [Unknown]
  - Skin atrophy [Unknown]
  - Electric shock sensation [Unknown]
